FAERS Safety Report 12373073 (Version 1)
Quarter: 2016Q2

REPORT INFORMATION
  Report Type: Report from Study
  Country: US (occurrence: US)
  Receive Date: 20160516
  Receipt Date: 20160516
  Transmission Date: 20160815
  Serious: Yes (Other)
  Sender: FDA-Public Use
  Company Number: US-MALLINCKRODT-T201505029

PATIENT
  Age: 48 Year
  Sex: Male
  Weight: 88 kg

DRUGS (4)
  1. CRESTOR [Concomitant]
     Active Substance: ROSUVASTATIN CALCIUM
  2. DIOVAN [Concomitant]
     Active Substance: VALSARTAN
  3. METOPROLOL. [Concomitant]
     Active Substance: METOPROLOL
  4. REPOSITORY CORTICOTROPIN INJECTION [Suspect]
     Active Substance: CORTICOTROPIN
     Indication: NEPHROPATHY
     Dosage: 80 UNITS TWICE WEEKLY
     Route: 058
     Dates: start: 201507, end: 20151014

REACTIONS (2)
  - Hypertension [Recovered/Resolved]
  - Migraine [Recovered/Resolved]

NARRATIVE: CASE EVENT DATE: 201507
